FAERS Safety Report 5690177-2 (Version None)
Quarter: 2008Q2

REPORT INFORMATION
  Report Type: 
  Country: None (occurrence: None)
  Receive Date: 20080401
  Receipt Date: 20080322
  Transmission Date: 20081010
  Serious: Yes (Hospitalization)
  Sender: FDA-Public Use
  Company Number: IT-JNJFOC-20080305767

PATIENT
  Age: 28 Year
  Sex: Male

DRUGS (6)
  1. REMICADE [Suspect]
     Indication: COLITIS ULCERATIVE
     Route: 042
  2. AZATHIOPRINE [Concomitant]
     Route: 048
  3. OMEPRAZOLE [Concomitant]
     Route: 048
  4. URBASON [Concomitant]
     Route: 042
  5. PREFOLIC [Concomitant]
     Route: 048
  6. CYPRO [Concomitant]
     Route: 048

REACTIONS (1)
  - CYTOMEGALOVIRUS INFECTION [None]
